FAERS Safety Report 7205542-1 (Version None)
Quarter: 2010Q4

REPORT INFORMATION
  Report Type: 
  Country: None (occurrence: None)
  Receive Date: 20101231
  Receipt Date: 20101220
  Transmission Date: 20110411
  Serious: Yes (Other)
  Sender: FDA-Public Use
  Company Number: PHHY2010FR87441

PATIENT
  Age: 20 Year
  Sex: Male

DRUGS (2)
  1. TRILEPTAL [Suspect]
     Dosage: 300 MG, BID
  2. LAMICTAL [Concomitant]
     Dosage: 100 UNK, TWICE PER DAY

REACTIONS (3)
  - GREENSTICK FRACTURE [None]
  - SPORTS INJURY [None]
  - VITAMIN D DECREASED [None]
